FAERS Safety Report 24117152 (Version 1)
Quarter: 2024Q3

REPORT INFORMATION
  Report Type: Report from Study
  Country: US (occurrence: None)
  Receive Date: 20240722
  Receipt Date: 20240722
  Transmission Date: 20241016
  Serious: Yes (Other)
  Sender: ASTRAZENECA
  Company Number: 2019SE85985

PATIENT
  Sex: Female

DRUGS (1)
  1. LYNPARZA [Suspect]
     Active Substance: OLAPARIB
     Indication: Ovarian cancer
     Route: 048
     Dates: start: 20190516

REACTIONS (8)
  - Cataract [Unknown]
  - Diarrhoea [Unknown]
  - Headache [Recovered/Resolved]
  - Blood creatinine increased [Recovered/Resolved]
  - Rash pruritic [Unknown]
  - Constipation [Unknown]
  - Bowel movement irregularity [Unknown]
  - Product dose omission issue [Unknown]
